FAERS Safety Report 7345472 (Version 2)
Quarter: 2014Q1

REPORT INFORMATION
  Report Type: Spontaneous
  Country: US (occurrence: US)
  Receive Date: 20100406
  Receipt Date: 20140130
  Transmission Date: 20141002
  Serious: Yes (Other)
  Sender: FDA-Public Use
  Company Number: US-JNJFOC-20100400174

PATIENT
  Sex: Female
  Weight: 77.11 kg

DRUGS (7)
  1. DURAGESIC [Suspect]
     Indication: BACK PAIN
     Route: 062
     Dates: end: 2008
  2. DURAGESIC [Suspect]
     Indication: BACK PAIN
     Route: 062
     Dates: start: 2008, end: 201001
  3. DURAGESIC [Suspect]
     Indication: BACK PAIN
     Route: 062
     Dates: start: 2008, end: 2008
  4. DURAGESIC [Suspect]
     Indication: BACK PAIN
     Route: 062
     Dates: start: 201001
  5. PREMPRO [Concomitant]
     Indication: HORMONE LEVEL ABNORMAL
     Route: 048
     Dates: start: 2007
  6. LISINOPRIL HCTZ [Concomitant]
     Indication: BLOOD PRESSURE
     Route: 048
  7. LEVOTHROID [Concomitant]
     Indication: THYROID DISORDER
     Route: 048

REACTIONS (9)
  - Depression [Not Recovered/Not Resolved]
  - Product quality issue [Unknown]
  - Back pain [Not Recovered/Not Resolved]
  - Drug administered at inappropriate site [Not Recovered/Not Resolved]
  - Drug administered at inappropriate site [Not Recovered/Not Resolved]
  - Application site irritation [Recovered/Resolved]
  - Application site haemorrhage [Recovered/Resolved]
  - Drug dose omission [Not Recovered/Not Resolved]
  - Therapeutic response increased [Not Recovered/Not Resolved]
